FAERS Safety Report 5707389-1 (Version None)
Quarter: 2008Q2

REPORT INFORMATION
  Report Type: 
  Country: None (occurrence: None)
  Receive Date: 20080416
  Receipt Date: 20080331
  Transmission Date: 20081010
  Serious: No
  Sender: FDA-Public Use
  Company Number: US-BOEHRINGER INGELHEIM GMBH, GERMANY-2008-BP-04986BP

PATIENT
  Sex: Male

DRUGS (6)
  1. SPIRIVA [Suspect]
     Indication: EMPHYSEMA
     Route: 055
     Dates: start: 20080321, end: 20080329
  2. OMEPRAZOLE [Concomitant]
     Indication: GASTRIC DISORDER
  3. PROSCAR [Concomitant]
     Indication: PROSTATIC DISORDER
  4. CARDURA [Concomitant]
     Indication: PROSTATIC DISORDER
  5. ASPIRIN [Concomitant]
  6. CALCIUM [Concomitant]

REACTIONS (1)
  - DYSPNOEA [None]
